FAERS Safety Report 6037149-6 (Version None)
Quarter: 2009Q1

REPORT INFORMATION
  Report Type: 
  Country: None (occurrence: None)
  Receive Date: 20090114
  Receipt Date: 20090105
  Transmission Date: 20090719
  Serious: Yes (Death, Life-Threatening, Hospitalization)
  Sender: FDA-Public Use
  Company Number: IN-ROCHE-603025

PATIENT
  Sex: Male
  Weight: 73.6 kg

DRUGS (25)
  1. INTERFERON ALFA [Suspect]
     Indication: RENAL CANCER
     Dosage: DOSE: 6000000 UI
     Route: 058
     Dates: start: 20081124, end: 20081209
  2. BEVACIZUMAB [Suspect]
     Indication: RENAL CANCER
     Route: 042
     Dates: start: 20081124, end: 20081209
  3. TEMSIROLIMUS [Suspect]
     Indication: RENAL CANCER
     Route: 065
  4. METOCLOPRAMIDA [Concomitant]
  5. OMEPRAZOLE [Concomitant]
     Indication: HIATUS HERNIA
     Route: 048
     Dates: start: 20081229, end: 20081231
  6. TRAMADOL HCL [Concomitant]
     Indication: PAIN
     Route: 048
  7. VALIUM [Concomitant]
     Route: 048
     Dates: start: 20081210, end: 20081220
  8. PERFALGAN [Concomitant]
     Dosage: WHEN REQUIRED.
     Route: 042
     Dates: start: 20081210, end: 20081221
  9. PANTOPRAZOL [Concomitant]
     Indication: PROPHYLAXIS
     Route: 042
     Dates: start: 20081210, end: 20081218
  10. DURAGESIC-100 [Concomitant]
     Indication: PAIN
     Dosage: 25 MCG EVERY 72 HOURS.
     Dates: start: 20081210, end: 20081223
  11. AUGMENTIN '125' [Concomitant]
     Route: 042
     Dates: start: 20081211, end: 20081218
  12. FORTECORTIN [Concomitant]
     Dosage: DOSE: 1/2 AMP.
     Route: 042
     Dates: start: 20081213, end: 20081221
  13. VITAMIN K [Concomitant]
     Dosage: DOSE: 1 AMP EVERY 12 HOURS.
     Route: 042
     Dates: start: 20081215, end: 20081218
  14. DOLANTINA [Concomitant]
     Indication: PAIN
     Dosage: DOSE: 1/2 AMP WHEN REQUIRED.
     Route: 058
     Dates: start: 20081210, end: 20081210
  15. ENANTYUM [Concomitant]
     Dosage: DOSE: 1 AMP PER 8 HOURS.
     Route: 042
     Dates: start: 20081210, end: 20081210
  16. ISOPLASMAL G [Concomitant]
     Route: 042
     Dates: start: 20081210, end: 20081218
  17. AMCHAFIBRIN [Concomitant]
     Dosage: FREQUENCY: EVERY 8 HOURS.
     Route: 042
     Dates: start: 20081210, end: 20081210
  18. AMIODARONE HCL [Concomitant]
     Indication: ARRHYTHMIA
     Route: 048
     Dates: start: 20081228, end: 20081228
  19. AMIODARONE HCL [Concomitant]
     Route: 048
     Dates: start: 20081201, end: 20081228
  20. TAZOBACTAM [Concomitant]
     Indication: INFECTION
     Route: 042
     Dates: start: 20081229
  21. ACETAMINOPHEN [Concomitant]
     Dates: start: 20081227, end: 20081227
  22. FRUSEMIDE [Concomitant]
     Dosage: DOSE: 1/2/8H
     Route: 042
     Dates: start: 20081210, end: 20081211
  23. POLARAMINE [Concomitant]
     Route: 042
     Dates: start: 20081210, end: 20081211
  24. FISIOLOGICA [Concomitant]
     Route: 042
     Dates: start: 20081210, end: 20081210
  25. GLUCOSALINA [Concomitant]
     Route: 042
     Dates: start: 20081218, end: 20081220

REACTIONS (5)
  - ANAEMIA [None]
  - ATRIAL FIBRILLATION [None]
  - HAEMATOMA INFECTION [None]
  - HAEMORRHAGE [None]
  - TUMOUR HAEMORRHAGE [None]
